FAERS Safety Report 7365575-1 (Version None)
Quarter: 2011Q1

REPORT INFORMATION
  Report Type: 
  Country: None (occurrence: None)
  Receive Date: 20110322
  Receipt Date: 20110314
  Transmission Date: 20110831
  Serious: Yes (Hospitalization, Other)
  Sender: FDA-Public Use
  Company Number: US-TEVA-271457USA

PATIENT
  Age: 33 Year
  Sex: Male

DRUGS (3)
  1. DIAZEPAM TAB [Suspect]
  2. SERTRALINE HYDROCHLORIDE [Suspect]
  3. FLUOXETINE [Suspect]

REACTIONS (1)
  - SEROTONIN SYNDROME [None]
